FAERS Safety Report 12600228 (Version 1)
Quarter: 2016Q3

REPORT INFORMATION
  Report Type: Spontaneous
  Country: NL (occurrence: NL)
  Receive Date: 20160727
  Receipt Date: 20160727
  Transmission Date: 20161109
  Serious: Yes (Other)
  Sender: FDA-Public Use
  Company Number: NL-TEVA-679179ISR

PATIENT
  Age: 3 Decade
  Sex: Female

DRUGS (6)
  1. HYDROCORTISONE. [Suspect]
     Active Substance: HYDROCORTISONE
     Indication: ECZEMA
     Dosage: 10 MG/G
     Route: 061
  2. TRIAMCINOLONE [Suspect]
     Active Substance: TRIAMCINOLONE
     Indication: ECZEMA
     Dosage: 0.1%
     Route: 061
  3. MOMETASONE [Suspect]
     Active Substance: MOMETASONE
     Indication: ECZEMA
     Route: 061
  4. BETAMETHASONE. [Suspect]
     Active Substance: BETAMETHASONE
     Indication: ECZEMA
     Dosage: 1 MG/G
     Route: 061
  5. CLOBETASOL [Suspect]
     Active Substance: CLOBETASOL
     Indication: ECZEMA
     Dosage: 0.5 MG/G
     Route: 061
  6. FLUTICASONE PROPIONATE. [Suspect]
     Active Substance: FLUTICASONE PROPIONATE
     Indication: ECZEMA
     Dosage: 0.5 MG/G
     Route: 061

REACTIONS (3)
  - Steroid withdrawal syndrome [Recovering/Resolving]
  - Skin atrophy [Unknown]
  - Eczema [Unknown]
